FAERS Safety Report 21357125 (Version 1)
Quarter: 2022Q3

REPORT INFORMATION
  Report Type: Spontaneous
  Country: FR (occurrence: FR)
  Receive Date: 20220921
  Receipt Date: 20220921
  Transmission Date: 20221026
  Serious: Yes (Hospitalization)
  Sender: FDA-Public Use
  Company Number: FR-AFSSAPS-TS20221931

PATIENT
  Age: 49 Year
  Sex: Female

DRUGS (6)
  1. LEVETIRACETAM [Suspect]
     Active Substance: LEVETIRACETAM
     Indication: Seizure prophylaxis
     Dosage: 250 MILLIGRAM, DAILY
     Route: 048
     Dates: start: 20220622, end: 20220703
  2. LANSOPRAZOLE [Suspect]
     Active Substance: LANSOPRAZOLE
     Indication: Gastrooesophageal reflux disease
     Dosage: 1.5 MILLIGRAM, DAILY
     Route: 048
     Dates: start: 20220629, end: 20220707
  3. PREVNAR 13 [Suspect]
     Active Substance: PNEUMOCOCCAL 13-VALENT CONJUGATE VACCINE
     Indication: Antibiotic prophylaxis
     Dosage: 2 DOSAGE FORM, UNK
     Route: 030
     Dates: start: 20220622, end: 20220706
  4. OXICONAZOLE NITRATE [Suspect]
     Active Substance: OXICONAZOLE NITRATE
     Indication: Antifungal treatment
     Dosage: 1 PERCENT, TID
     Route: 003
     Dates: start: 20220703, end: 20220707
  5. XIGDUO XR [Suspect]
     Active Substance: DAPAGLIFLOZIN PROPANEDIOL\METFORMIN HYDROCHLORIDE
     Indication: Diabetes mellitus
     Dosage: 1 DOSAGE FORM, BID
     Route: 048
     Dates: start: 20220705, end: 20220713
  6. TOUJEO [Suspect]
     Active Substance: INSULIN GLARGINE
     Indication: Diabetes mellitus
     Dosage: UNK
     Route: 058
     Dates: start: 20220701, end: 20220707

REACTIONS (1)
  - Rash papular [Recovering/Resolving]

NARRATIVE: CASE EVENT DATE: 20220708
